FAERS Safety Report 7438121-1 (Version None)
Quarter: 2011Q2

REPORT INFORMATION
  Report Type: 
  Country: None (occurrence: None)
  Receive Date: 20110426
  Receipt Date: 20110414
  Transmission Date: 20111010
  Serious: Yes (Hospitalization)
  Sender: FDA-Public Use
  Company Number: MY-BRISTOL-MYERS SQUIBB COMPANY-15690175

PATIENT
  Age: 29 Year
  Sex: Male

DRUGS (5)
  1. BENZHEXOL [Concomitant]
     Dates: start: 20110308, end: 20110322
  2. RISPERIDONE [Concomitant]
     Dates: start: 20110308, end: 20110322
  3. ZOLPIDEM [Concomitant]
     Dates: start: 20110407, end: 20110411
  4. ABILIFY [Suspect]
     Indication: SCHIZOPHRENIA
     Dosage: 6MG 8-22MAR11(15D) 12MG 23MAR-7APR11(16D) 18MG 8-12APR11(5D)
     Route: 048
     Dates: start: 20110308, end: 20110412
  5. OLANZAPINE [Concomitant]
     Dosage: OLANZAPINE ORODISPERSIBLE TABS
     Route: 048
     Dates: start: 20110412

REACTIONS (1)
  - SOCIAL PROBLEM [None]
